FAERS Safety Report 5370975-5 (Version None)
Quarter: 2007Q2

REPORT INFORMATION
  Report Type: 
  Country: None (occurrence: None)
  Receive Date: 20070626
  Receipt Date: 20070614
  Transmission Date: 20071010
  Serious: Yes (Hospitalization)
  Sender: FDA-Public Use
  Company Number: US-PFIZER INC-2007013191

PATIENT

DRUGS (1)
  1. CHANTIX [Suspect]

REACTIONS (2)
  - MALAISE [None]
  - RETCHING [None]
